FAERS Safety Report 25942134 (Version 2)
Quarter: 2025Q4

REPORT INFORMATION
  Report Type: Spontaneous
  Country: JP (occurrence: JP)
  Receive Date: 20251020
  Receipt Date: 20251105
  Transmission Date: 20260118
  Serious: Yes (Hospitalization, Other)
  Sender: TAKEDA
  Company Number: JP-TAKEDA-2025TJP010504

PATIENT
  Age: 28 Year
  Sex: Male

DRUGS (1)
  1. ENTYVIO [Suspect]
     Active Substance: VEDOLIZUMAB
     Indication: Product used for unknown indication
     Dosage: 300 MILLIGRAM

REACTIONS (4)
  - Vomiting [Recovered/Resolved]
  - Impaired gastric emptying [Unknown]
  - Hepatic function abnormal [Unknown]
  - Pyrexia [Unknown]

NARRATIVE: CASE EVENT DATE: 20251004
